FAERS Safety Report 10194205 (Version 1)
Quarter: 2014Q2

REPORT INFORMATION
  Report Type: Spontaneous
  Country: US (occurrence: US)
  Receive Date: 20140524
  Receipt Date: 20140524
  Transmission Date: 20141212
  Serious: No
  Sender: FDA-Public Use
  Company Number: US-SANOFI-AVENTIS-2013SA069674

PATIENT
  Age: 49 Year
  Sex: Male
  Weight: 22.22 kg

DRUGS (12)
  1. LANTUS SOLOSTAR [Suspect]
     Indication: TYPE 2 DIABETES MELLITUS
     Dosage: TAKEN FROM - ON AND OFF FOR 4 YEARS DOSE:400 UNIT(S)
     Route: 065
  2. SOLOSTAR [Concomitant]
     Indication: TYPE 2 DIABETES MELLITUS
     Dosage: ON AND OFF FOR 4 YEARS
  3. GLIPIZIDE [Concomitant]
     Indication: TYPE 2 DIABETES MELLITUS
     Route: 065
  4. METFORMIN [Concomitant]
     Indication: TYPE 2 DIABETES MELLITUS
     Route: 065
  5. BUPROPION [Concomitant]
     Indication: DEPRESSION
     Route: 065
  6. FENOFIBRATE [Concomitant]
     Indication: BLOOD CHOLESTEROL INCREASED
     Route: 065
  7. LIPITOR [Concomitant]
     Indication: BLOOD CHOLESTEROL INCREASED
     Route: 065
  8. LISINOPRIL [Concomitant]
     Indication: BLOOD PRESSURE
     Route: 065
  9. TRAMADOL [Concomitant]
     Indication: PAIN
     Route: 065
  10. NAPROXEN [Concomitant]
     Indication: OSTEOARTHRITIS
     Route: 065
  11. REGLAN [Concomitant]
     Indication: GASTRIC DISORDER
     Route: 065
  12. REQUIP [Concomitant]
     Indication: RESTLESS LEGS SYNDROME
     Route: 065

REACTIONS (5)
  - Impaired gastric emptying [Not Recovered/Not Resolved]
  - Aphagia [Not Recovered/Not Resolved]
  - Weight decreased [Not Recovered/Not Resolved]
  - Blood glucose increased [Not Recovered/Not Resolved]
  - Drug dose omission [Unknown]
